FAERS Safety Report 6521395-9 (Version None)
Quarter: 2009Q4

REPORT INFORMATION
  Report Type: 
  Country: None (occurrence: None)
  Receive Date: 20091230
  Receipt Date: 20091221
  Transmission Date: 20100525
  Serious: Yes (Life-Threatening, Hospitalization)
  Sender: FDA-Public Use
  Company Number: KR-MPIJNJ-2009-05329

PATIENT

DRUGS (14)
  1. VELCADE [Suspect]
     Indication: MULTIPLE MYELOMA
     Dosage: 1.3 MG/M2, CYCLIC
     Route: 042
     Dates: start: 20091121, end: 20091207
  2. GASTER                             /00706001/ [Concomitant]
     Dosage: 20 MG, UNK
     Route: 048
     Dates: start: 20091102
  3. DOXIUM [Concomitant]
     Indication: HYPERTENSION
     Dosage: 2 DF, UNK
     Route: 048
     Dates: start: 20091112, end: 20091123
  4. BASEN [Concomitant]
     Indication: DIABETES MELLITUS
     Dosage: 0.3 MG, UNK
     Route: 048
     Dates: start: 20091113
  5. FASTIC [Concomitant]
     Indication: DIABETES MELLITUS
     Dosage: 90 MG, UNK
     Route: 048
     Dates: start: 20091113, end: 20091116
  6. LASIX [Concomitant]
     Indication: OEDEMA
     Dosage: 20 MG, UNK
     Route: 042
     Dates: start: 20091119, end: 20091120
  7. LASIX [Concomitant]
     Dosage: 20 UNK, UNK
     Route: 042
     Dates: start: 20091122, end: 20091124
  8. LASIX [Concomitant]
     Dosage: 0.5 UNK, UNK
     Route: 042
     Dates: start: 20091124, end: 20091126
  9. LASIX [Concomitant]
     Dosage: 20 UNK, UNK
     Route: 042
     Dates: start: 20091126, end: 20091201
  10. LASIX [Concomitant]
     Dosage: 40 UNK, UNK
     Route: 042
     Dates: start: 20091202, end: 20091210
  11. LIPITOR [Concomitant]
     Indication: HYPERTENSION
     Dosage: 10 MG, UNK
     Route: 048
     Dates: start: 20091120, end: 20091123
  12. ULTRACET [Concomitant]
     Indication: PAIN
     Dosage: 1 DF, UNK
     Route: 048
     Dates: start: 20091123, end: 20091123
  13. DEXAMETHASONE [Concomitant]
     Indication: PROPHYLAXIS
     Dosage: 20 MG, UNK
     Route: 042
     Dates: start: 20091121, end: 20091124
  14. K-CONTIN CONTINUS [Concomitant]
     Indication: HYPOKALAEMIA
     Dosage: 1 DF, UNK
     Route: 048
     Dates: start: 20091208, end: 20091209

REACTIONS (1)
  - SUBDURAL HAEMATOMA [None]
